FAERS Safety Report 5006904-3 (Version None)
Quarter: 2006Q2

REPORT INFORMATION
  Report Type: 
  Country: None (occurrence: None)
  Receive Date: 20060519
  Receipt Date: 20060508
  Transmission Date: 20061013
  Serious: Yes (Other)
  Sender: FDA-Public Use
  Company Number: FR-BRISTOL-MYERS SQUIBB COMPANY-13373410

PATIENT
  Age: 48 Year
  Sex: Male
  Weight: 68 kg

DRUGS (4)
  1. ARIPIPRAZOLE [Suspect]
     Indication: PSYCHOTIC DISORDER
     Route: 048
     Dates: start: 20050921
  2. MIANSERIN [Concomitant]
     Indication: DEPRESSION
  3. CYAMEMAZINE [Concomitant]
     Indication: EXTRAPYRAMIDAL DISORDER
     Route: 048
  4. BIPERIDEN HYDROCHLORIDE TAB [Concomitant]
     Indication: EXTRAPYRAMIDAL DISORDER
     Dates: start: 20051115

REACTIONS (1)
  - STATUS EPILEPTICUS [None]
